FAERS Safety Report 5846245-5 (Version None)
Quarter: 2008Q3

REPORT INFORMATION
  Report Type: 
  Country: None (occurrence: None)
  Receive Date: 20080813
  Receipt Date: 20080731
  Transmission Date: 20090109
  Serious: Yes (Hospitalization)
  Sender: FDA-Public Use
  Company Number: ENDC20080026

PATIENT
  Age: 76 Year
  Sex: Female

DRUGS (1)
  1. ENDOCET [Suspect]
     Indication: PAIN
     Dosage: 1-2 TABLETS Q4H PRN, PER ORAL
     Route: 048
     Dates: start: 20080726, end: 20080701

REACTIONS (2)
  - HEMIPLEGIA [None]
  - HYPOAESTHESIA [None]
